FAERS Safety Report 7556585-X (Version None)
Quarter: 2011Q2

REPORT INFORMATION
  Report Type: 
  Country: None (occurrence: None)
  Receive Date: 20110620
  Receipt Date: 20110608
  Transmission Date: 20111010
  Serious: Yes (Hospitalization, Disabling, Other)
  Sender: FDA-Public Use
  Company Number: US-ELI_LILLY_AND_COMPANY-US201106003457

PATIENT
  Sex: Female

DRUGS (5)
  1. GABAPENTIN [Concomitant]
  2. KLONOPIN [Concomitant]
  3. PRISTIQ [Concomitant]
  4. AMBIEN [Concomitant]
  5. EVISTA [Suspect]
     Indication: OSTEOPOROSIS
     Dosage: 60 MG, QD

REACTIONS (4)
  - CRYING [None]
  - MENTAL DISORDER [None]
  - AMNESIA [None]
  - CONFUSIONAL STATE [None]
